FAERS Safety Report 7043524-3 (Version None)
Quarter: 2010Q4

REPORT INFORMATION
  Report Type: 
  Country: None (occurrence: None)
  Receive Date: 20101013
  Receipt Date: 20101007
  Transmission Date: 20110411
  Serious: Yes (Death, Hospitalization)
  Sender: FDA-Public Use
  Company Number: A0764681A

PATIENT
  Age: 63 Year
  Sex: Female
  Weight: 88.2 kg

DRUGS (11)
  1. AVANDARYL [Suspect]
     Route: 048
     Dates: start: 20061130, end: 20061230
  2. AVANDAMET [Suspect]
  3. METFORMIN [Concomitant]
  4. LANTUS [Concomitant]
  5. NORVASC [Concomitant]
  6. OMEPRAZOLE [Concomitant]
  7. TOPROL-XL [Concomitant]
  8. LIPITOR [Concomitant]
  9. COZAAR [Concomitant]
  10. GEMFIBROZIL [Concomitant]
  11. CITALOPRAM HYDROBROMIDE [Concomitant]

REACTIONS (3)
  - CARDIAC ARREST [None]
  - HYPOXIC-ISCHAEMIC ENCEPHALOPATHY [None]
  - MYOCARDIAL INFARCTION [None]
